FAERS Safety Report 22188951 (Version 2)
Quarter: 2023Q2

REPORT INFORMATION
  Report Type: Spontaneous
  Country: DE (occurrence: DE)
  Receive Date: 20230409
  Receipt Date: 20230419
  Transmission Date: 20230722
  Serious: Yes (Other)
  Sender: FDA-Public Use
  Company Number: DE-ALCON LABORATORIES-ALC2023DE001549

PATIENT
  Age: 15 Year
  Sex: Female

DRUGS (1)
  1. CYCLOPENTOLATE HYDROCHLORIDE [Suspect]
     Active Substance: CYCLOPENTOLATE HYDROCHLORIDE
     Indication: Ophthalmological examination
     Dosage: OCULAR USE
     Route: 050

REACTIONS (2)
  - Circulatory collapse [Recovered/Resolved]
  - Nausea [Recovered/Resolved]

NARRATIVE: CASE EVENT DATE: 20230320
